FAERS Safety Report 8914745 (Version 1)
Quarter: 2012Q4

REPORT INFORMATION
  Report Type: 
  Country: BR (occurrence: BR)
  Receive Date: 20121119
  Receipt Date: 20121119
  Transmission Date: 20130627
  Serious: Yes (Other)
  Sender: FDA-Public Use
  Company Number: BR-ASTRAZENECA-2012SE85167

PATIENT
  Age: 62 Year
  Sex: Female
  Weight: 52 kg

DRUGS (5)
  1. ATACAND HCT [Suspect]
     Indication: HYPERTENSION
     Dosage: 16/12.5 mg, DAILY
     Route: 048
     Dates: start: 2009, end: 201207
  2. SELOZOK [Suspect]
     Indication: ARRHYTHMIA
     Route: 048
     Dates: start: 2009
  3. SINVASCOR [Concomitant]
     Indication: BLOOD CHOLESTEROL INCREASED
     Route: 048
     Dates: start: 2011
  4. GALVUS MET [Concomitant]
     Indication: DIABETES MELLITUS
     Dosage: BID
     Route: 048
     Dates: start: 2011
  5. UNKNOWN MEDICATION [Concomitant]
     Indication: THROMBOSIS

REACTIONS (3)
  - Diabetes mellitus [Recovering/Resolving]
  - Blood cholesterol increased [Recovering/Resolving]
  - Hypotension [Unknown]
